FAERS Safety Report 21711990 (Version 6)
Quarter: 2023Q1

REPORT INFORMATION
  Report Type: Report from Study
  Country: JP (occurrence: JP)
  Receive Date: 20221212
  Receipt Date: 20230131
  Transmission Date: 20230418
  Serious: Yes (Hospitalization)
  Sender: FDA-Public Use
  Company Number: JP-002147023-NVSC2022JP284541

PATIENT
  Age: 28 Year
  Sex: Female
  Weight: 50.4 kg

DRUGS (10)
  1. ILARIS [Suspect]
     Active Substance: CANAKINUMAB
     Indication: Still^s disease
     Dosage: 4 MG/KG, Q4W
     Route: 058
     Dates: start: 20221026
  2. METHOTREXATE [Suspect]
     Active Substance: METHOTREXATE
     Indication: Still^s disease
     Dosage: UNK
     Route: 065
     Dates: start: 20220926, end: 20221213
  3. PREDNISOLONE [Suspect]
     Active Substance: PREDNISOLONE
     Indication: Still^s disease
     Dosage: UNK
     Route: 065
     Dates: start: 20220808, end: 20221222
  4. LOXOPROFEN SODIUM [Concomitant]
     Active Substance: LOXOPROFEN SODIUM
     Indication: Still^s disease
     Dosage: UNK
     Route: 065
     Dates: start: 20221014
  5. PATANOL [Concomitant]
     Active Substance: OLOPATADINE HYDROCHLORIDE
     Indication: Idiopathic orbital inflammation
     Dosage: UNK
     Route: 065
     Dates: start: 20221128
  6. COLCHICINE [Concomitant]
     Active Substance: COLCHICINE
     Indication: Still^s disease
     Dosage: UNK
     Route: 065
     Dates: start: 20220527
  7. RABEPRAZOLE SODIUM [Concomitant]
     Active Substance: RABEPRAZOLE SODIUM
     Indication: Prophylaxis
     Dosage: UNK
     Route: 065
     Dates: start: 2019
  8. ELDECALCITOL [Concomitant]
     Active Substance: ELDECALCITOL
     Indication: Osteoporosis prophylaxis
     Dosage: UNK
     Route: 065
     Dates: start: 2019
  9. SULFAMETHOXAZOLE\TRIMETHOPRIM [Concomitant]
     Active Substance: SULFAMETHOXAZOLE\TRIMETHOPRIM
     Indication: Antifungal prophylaxis
     Dosage: UNK
     Route: 065
     Dates: start: 2019
  10. HYALURONATE SODIUM [Concomitant]
     Active Substance: HYALURONATE SODIUM
     Indication: Idiopathic orbital inflammation
     Dosage: UNK
     Route: 065
     Dates: start: 20221122

REACTIONS (1)
  - COVID-19 [Recovered/Resolved]

NARRATIVE: CASE EVENT DATE: 20221201
